FAERS Safety Report 11611173 (Version 1)
Quarter: 2015Q4

REPORT INFORMATION
  Report Type: Spontaneous
  Country: US (occurrence: None)
  Receive Date: 20151007
  Receipt Date: 20151007
  Transmission Date: 20160304
  Serious: No
  Sender: FDA-Public Use
  Company Number: None

PATIENT
  Age: 70 Year
  Sex: Male
  Weight: 105 kg

DRUGS (1)
  1. WARFARIN [Suspect]
     Active Substance: WARFARIN
     Dosage: MG QD PO
     Route: 048

REACTIONS (18)
  - Decubitus ulcer [None]
  - Haematocrit decreased [None]
  - Pericardial effusion [None]
  - Colitis [None]
  - Gastric haemorrhage [None]
  - International normalised ratio increased [None]
  - Haematoma [None]
  - Cholelithiasis [None]
  - Haemorrhoidal haemorrhage [None]
  - Head injury [None]
  - Arteriosclerosis coronary artery [None]
  - Haemoglobin decreased [None]
  - Bladder dilatation [None]
  - Pleural effusion [None]
  - Dizziness [None]
  - Asthenia [None]
  - Fall [None]
  - Post procedural haemorrhage [None]

NARRATIVE: CASE EVENT DATE: 20150925
